FAERS Safety Report 6127109-9 (Version None)
Quarter: 2009Q1

REPORT INFORMATION
  Report Type: 
  Country: None (occurrence: None)
  Receive Date: 20090318
  Receipt Date: 20090304
  Transmission Date: 20090719
  Serious: Yes (Other)
  Sender: FDA-Public Use
  Company Number: SPV1-2008-02115

PATIENT
  Age: 11 Year
  Sex: Male
  Weight: 30 kg

DRUGS (15)
  1. ELAPRASE [Suspect]
     Indication: MUCOPOLYSACCHARIDOSIS II
     Dosage: 12 MG, 1 X/WEEK, IV DRIP
     Route: 041
     Dates: start: 20080813
  2. VENTOLIN [Concomitant]
  3. PULMICORT [Concomitant]
  4. FLONASE [Concomitant]
  5. SINGULAIR /01362601/ (MONTELUKAST) [Concomitant]
  6. RANITIDINE [Concomitant]
  7. CARBAMAZEPINE [Concomitant]
  8. ZINC (ZINC) [Concomitant]
  9. VITAMIN C /00008001/ (ASCORBIC ACID) [Concomitant]
  10. B COMPLEX /00212701/ (NICOTINAMIDE, PYRIDOXINE HYDROCHLORIDE, RIBOFLAV [Concomitant]
  11. MULTIVITAMIN /00097801/ (ASCORBIC ACID, CALCIUM PANTOTHENATE, ERGOCALC [Concomitant]
  12. SOY ISOFLAVONES (GLYCINE MAX EXTRACT) [Concomitant]
  13. DOMPERIDON /00498201/ (DOMPERIDONE) [Concomitant]
  14. LACTULOSE [Concomitant]
  15. DIPHENHYDRAMINE HCL [Concomitant]

REACTIONS (7)
  - AGITATION [None]
  - COUGH [None]
  - DERMATITIS ALLERGIC [None]
  - DISCOMFORT [None]
  - HEART RATE INCREASED [None]
  - INFUSION RELATED REACTION [None]
  - WHEEZING [None]
